FAERS Safety Report 11500626 (Version 1)
Quarter: 2015Q3

REPORT INFORMATION
  Report Type: Spontaneous
  Country: US (occurrence: None)
  Receive Date: 20150911
  Receipt Date: 20150911
  Transmission Date: 20151125
  Serious: Yes (Death, Hospitalization, Other)
  Sender: FDA-Public Use
  Company Number: None

PATIENT
  Age: 88 Year
  Sex: Male
  Weight: 52.62 kg

DRUGS (15)
  1. VITAMINS C WITH ROSEHIPS [Concomitant]
  2. LIPITOR [Concomitant]
     Active Substance: ATORVASTATIN CALCIUM
  3. METOPROLOL LOPRESSOR [Concomitant]
  4. ISOSORBIDE. [Concomitant]
     Active Substance: ISOSORBIDE
  5. BABY ASPIRIN [Concomitant]
     Active Substance: ASPIRIN
  6. CITRACAL [Concomitant]
     Active Substance: CALCIUM CITRATE
  7. METOPROLOL TARTRATE. [Concomitant]
     Active Substance: METOPROLOL TARTRATE
  8. ALEVE-FLEX-A-MIN [Concomitant]
  9. NITRO [Concomitant]
     Active Substance: NITROGLYCERIN
  10. ONE A DAY ENERGY [Concomitant]
     Active Substance: VITAMINS
  11. PLAVIX [Concomitant]
     Active Substance: CLOPIDOGREL BISULFATE
  12. ATORVASTATIN [Concomitant]
     Active Substance: ATORVASTATIN
  13. CLOPIDOGREL [Concomitant]
     Active Substance: CLOPIDOGREL BISULFATE
  14. L-GLUTAMINE [Concomitant]
  15. PLAVIX [Suspect]
     Active Substance: CLOPIDOGREL BISULFATE
     Indication: ANTICOAGULANT THERAPY
     Dosage: 75 MG TABS?1 PILL EVERYDAY?ONCE?BY MOUTH
     Route: 048
     Dates: start: 20150811, end: 20150818

REACTIONS (2)
  - Gastric haemorrhage [None]
  - Gastric perforation [None]

NARRATIVE: CASE EVENT DATE: 20150817
